FAERS Safety Report 19465462 (Version 2)
Quarter: 2022Q1

REPORT INFORMATION
  Report Type: Spontaneous
  Country: US (occurrence: US)
  Receive Date: 20210624
  Receipt Date: 20220204
  Transmission Date: 20220424
  Serious: Yes (Other)
  Sender: FDA-Public Use
  Company Number: US-GILEAD-2021-0537436

PATIENT
  Sex: Male
  Weight: 83.9 kg

DRUGS (30)
  1. TRUVADA [Suspect]
     Active Substance: EMTRICITABINE\TENOFOVIR DISOPROXIL FUMARATE
     Indication: HIV infection
     Dosage: UNK
     Route: 048
     Dates: start: 2007, end: 2018
  2. BIKTARVY [Concomitant]
     Active Substance: BICTEGRAVIR SODIUM\EMTRICITABINE\TENOFOVIR ALAFENAMIDE FUMARATE
  3. DESCOVY [Concomitant]
     Active Substance: EMTRICITABINE\TENOFOVIR ALAFENAMIDE FUMARATE
  4. GENVOYA [Concomitant]
     Active Substance: COBICISTAT\ELVITEGRAVIR\EMTRICITABINE\TENOFOVIR ALAFENAMIDE FUMARATE
  5. METOPROLOL [Concomitant]
     Active Substance: METOPROLOL
  6. ISENTRESS [Concomitant]
     Active Substance: RALTEGRAVIR POTASSIUM
  7. NORVIR [Concomitant]
     Active Substance: RITONAVIR
  8. PREZISTA [Concomitant]
     Active Substance: DARUNAVIR ETHANOLATE
  9. SUSTIVA [Concomitant]
     Active Substance: EFAVIRENZ
  10. TIVICAY [Concomitant]
     Active Substance: DOLUTEGRAVIR SODIUM
  11. PREDNISONE [Concomitant]
     Active Substance: PREDNISONE
  12. ZOLPIDEM [Concomitant]
     Active Substance: ZOLPIDEM TARTRATE
  13. FLUCONAZOLE [Concomitant]
     Active Substance: FLUCONAZOLE
  14. TRAZODONE [Concomitant]
     Active Substance: TRAZODONE HYDROCHLORIDE
  15. LOPERAMIDE [Concomitant]
     Active Substance: LOPERAMIDE
  16. CEFDINIR [Concomitant]
     Active Substance: CEFDINIR
  17. ATORVASTATIN [Concomitant]
     Active Substance: ATORVASTATIN
  18. CLINDAMYCIN [Concomitant]
     Active Substance: CLINDAMYCIN
  19. KETOCONAZOLE [Concomitant]
     Active Substance: KETOCONAZOLE
  20. DOXYCYCLINE [Concomitant]
     Active Substance: DOXYCYCLINE
  21. CIPROFLOXACIN [Concomitant]
     Active Substance: CIPROFLOXACIN
  22. METRONIDAZOLE [Concomitant]
     Active Substance: METRONIDAZOLE
  23. NEXIUM I.V. [Concomitant]
     Active Substance: ESOMEPRAZOLE SODIUM
  24. NAPROXEN [Concomitant]
     Active Substance: NAPROXEN
  25. OXYCODONE [Concomitant]
     Active Substance: OXYCODONE
  26. TRAMADOL [Concomitant]
     Active Substance: TRAMADOL
  27. HYDROMORPHONE [Concomitant]
     Active Substance: HYDROMORPHONE
  28. CEPHALEXIN [Concomitant]
     Active Substance: CEPHALEXIN
  29. VALACYCLOVIR HYDROCHLORIDE [Concomitant]
     Active Substance: VALACYCLOVIR HYDROCHLORIDE
  30. SULFAMETHOXAZOLE\TRIMETHOPRIM [Concomitant]
     Active Substance: SULFAMETHOXAZOLE\TRIMETHOPRIM

REACTIONS (19)
  - Renal injury [Unknown]
  - Atrial fibrillation [Recovered/Resolved]
  - Pain [Not Recovered/Not Resolved]
  - Emotional distress [Not Recovered/Not Resolved]
  - Anxiety [Not Recovered/Not Resolved]
  - Anhedonia [Not Recovered/Not Resolved]
  - Pollakiuria [Unknown]
  - Blood lactic acid increased [Unknown]
  - Muscle fatigue [Unknown]
  - Arthralgia [Unknown]
  - Muscle spasms [Unknown]
  - Palpitations [Unknown]
  - Hypertension [Not Recovered/Not Resolved]
  - Dizziness [Unknown]
  - Swelling [Unknown]
  - Insomnia [Unknown]
  - Depression [Not Recovered/Not Resolved]
  - Dyspnoea [Unknown]
  - Blood creatinine increased [Not Recovered/Not Resolved]
